FAERS Safety Report 5806815-7 (Version None)
Quarter: 2008Q3

REPORT INFORMATION
  Report Type: 
  Country: None (occurrence: None)
  Receive Date: 20080711
  Receipt Date: 20080704
  Transmission Date: 20090109
  Serious: Yes (Death)
  Sender: FDA-Public Use
  Company Number: TW-TYCO HEALTHCARE/MALLINCKRODT-T200801119

PATIENT

DRUGS (1)
  1. CONRAY [Suspect]
     Indication: COMPUTERISED TOMOGRAM THORAX
     Dosage: 100 ML, SINGLE
     Route: 042
     Dates: start: 20080703, end: 20080703

REACTIONS (3)
  - ARRHYTHMIA [None]
  - DYSPNOEA [None]
  - PALLOR [None]
